FAERS Safety Report 16205897 (Version 2)
Quarter: 2019Q2

REPORT INFORMATION
  Report Type: Report from Study
  Country: TR (occurrence: TR)
  Receive Date: 20190417
  Receipt Date: 20190425
  Transmission Date: 20190711
  Serious: Yes (Other)
  Sender: FDA-Public Use
  Company Number: TR-ROCHE-2304932

PATIENT

DRUGS (1)
  1. CAPECITABINE. [Suspect]
     Active Substance: CAPECITABINE
     Indication: RECTAL CANCER
     Route: 048

REACTIONS (14)
  - Nausea [Unknown]
  - Wound dehiscence [Unknown]
  - Abscess [Unknown]
  - Enterocutaneous fistula [Unknown]
  - Anaemia [Unknown]
  - Leukopenia [Unknown]
  - Anastomotic complication [Unknown]
  - Toxicity to various agents [Unknown]
  - Diarrhoea [Unknown]
  - Vomiting [Unknown]
  - Radiation skin injury [Unknown]
  - Thrombocytopenia [Unknown]
  - Abdominal pain [Unknown]
  - Dysuria [Unknown]
